FAERS Safety Report 4401184-1 (Version None)
Quarter: 2004Q3

REPORT INFORMATION
  Report Type: 
  Country: None (occurrence: None)
  Receive Date: 20040907
  Receipt Date: 20031205
  Transmission Date: 20050211
  Serious: No
  Sender: FDA-Public Use
  Company Number: US-BRISTOL-MYERS SQUIBB COMPANY-12451431

PATIENT
  Age: 77 Year
  Sex: Female
  Weight: 58 kg

DRUGS (8)
  1. COUMADIN [Suspect]
     Indication: THROMBOSIS
     Dosage: 7.5 MG 4 X WEEKLY AND 5 MG 3 X WEEKLY.
     Route: 048
     Dates: start: 20031001, end: 20031120
  2. LOVENOX [Concomitant]
  3. ZOLOFT [Concomitant]
  4. AMBIEN [Concomitant]
  5. TYLENOL [Concomitant]
  6. MULTIVITAMIN [Concomitant]
  7. OS-CAL [Concomitant]
  8. MULTI-VITAMINS [Concomitant]

REACTIONS (2)
  - INTERNATIONAL NORMALISED RATIO ABNORMAL [None]
  - RASH [None]
